FAERS Safety Report 9950672 (Version 1)
Quarter: 2014Q1

REPORT INFORMATION
  Report Type: Report from Study
  Country: US (occurrence: US)
  Receive Date: 20140304
  Receipt Date: 20140304
  Transmission Date: 20141002
  Serious: No
  Sender: FDA-Public Use
  Company Number: US-ABBVIE-13P-163-1065594-00

PATIENT
  Sex: Male

DRUGS (3)
  1. HUMIRA [Suspect]
     Indication: PSORIATIC ARTHROPATHY
     Route: 058
     Dates: start: 2011, end: 2013
  2. HUMIRA [Suspect]
     Route: 058
     Dates: start: 2013
  3. HUMIRA [Suspect]

REACTIONS (4)
  - Ingrown hair [Recovered/Resolved]
  - Scrotal abscess [Recovered/Resolved]
  - Pain [Recovered/Resolved]
  - Scrotal swelling [Recovered/Resolved]
